FAERS Safety Report 7057018-2 (Version None)
Quarter: 2010Q4

REPORT INFORMATION
  Report Type: 
  Country: None (occurrence: None)
  Receive Date: 20101022
  Receipt Date: 20101006
  Transmission Date: 20110411
  Serious: Yes (Hospitalization)
  Sender: FDA-Public Use
  Company Number: US-BAYER-200944111NA

PATIENT
  Age: 52 Year
  Sex: Female
  Weight: 60 kg

DRUGS (1)
  1. YAZ [Suspect]
     Indication: CONTRACEPTION
     Dosage: PHARMACY RECORDS: YAZ 84 DAY SUPPLY REFILLED ON 16AUG2006
     Route: 048
     Dates: start: 20060801, end: 20061001

REACTIONS (1)
  - PULMONARY EMBOLISM [None]
